FAERS Safety Report 23761480 (Version 1)
Quarter: 2024Q2

REPORT INFORMATION
  Report Type: Spontaneous
  Country: GB (occurrence: GB)
  Receive Date: 20240419
  Receipt Date: 20240419
  Transmission Date: 20240716
  Serious: Yes (Other)
  Sender: FDA-Public Use
  Company Number: None

PATIENT
  Age: 41 Year
  Sex: Male
  Weight: 133 kg

DRUGS (11)
  1. VENLAFAXINE [Suspect]
     Active Substance: VENLAFAXINE HYDROCHLORIDE
     Route: 065
     Dates: start: 20240209
  2. ORLISTAT [Concomitant]
     Active Substance: ORLISTAT
     Dosage: TIME INTERVAL: 0.33333333 DAYS: TAKE ONE 3 TIMES/DAY
     Dates: start: 20240304
  3. ATORVASTATIN [Concomitant]
     Active Substance: ATORVASTATIN
     Dosage: TAKE ONE DAILY, DURATION: 163 DAYS
     Dates: start: 20230920, end: 20240301
  4. NITROGLYCERIN [Concomitant]
     Active Substance: NITROGLYCERIN
     Dosage: TIME INTERVAL: AS NECESSARY: ONE PUFF AS NEEDED
     Dates: start: 20230920
  5. ASPIRIN [Concomitant]
     Active Substance: ASPIRIN
     Dosage: TAKE ONE DAILY
     Dates: start: 20230920
  6. FLUOXETINE [Concomitant]
     Active Substance: FLUOXETINE HYDROCHLORIDE
     Dosage: TAKE ONE DAILY
     Dates: start: 20240409
  7. RAMIPRIL [Concomitant]
     Active Substance: RAMIPRIL
     Dosage: TAKE ONE DAILY
     Dates: start: 20230920
  8. ROSUVASTATIN [Concomitant]
     Active Substance: ROSUVASTATIN
     Dosage: TAKE ONE DAILY
     Dates: start: 20240301
  9. PNEUMOCOCCAL POLYSACCHARIDE [Concomitant]
     Dosage: USE AS DIRECTED, DURATION: 1 DAY
     Dates: start: 20240301, end: 20240302
  10. BISOPROLOL [Concomitant]
     Active Substance: BISOPROLOL\BISOPROLOL FUMARATE
     Dosage: TAKE ONE DAILY
     Dates: start: 20230920
  11. DULOXETINE [Concomitant]
     Active Substance: DULOXETINE
     Dosage: ONE TO BE TAKEN DAILY (TOTAL 90MG DAILY) FOR SE..., DURATION: 149 DAYS
     Dates: start: 20230920, end: 20240216

REACTIONS (2)
  - Arrhythmia [Recovered/Resolved]
  - Palpitations [Unknown]
